FAERS Safety Report 24310539 (Version 1)
Quarter: 2024Q3

REPORT INFORMATION
  Report Type: Report from Study
  Country: US (occurrence: US)
  Receive Date: 20240912
  Receipt Date: 20240912
  Transmission Date: 20241017
  Serious: Yes (Death, Hospitalization)
  Sender: ROCHE
  Company Number: US-ROCHE-10000066516

PATIENT
  Age: 73 Year
  Sex: Male
  Weight: 147 kg

DRUGS (2)
  1. OCREVUS [Suspect]
     Active Substance: OCRELIZUMAB
     Indication: Primary progressive multiple sclerosis
     Route: 042
  2. OCREVUS [Suspect]
     Active Substance: OCRELIZUMAB
     Route: 042

REACTIONS (7)
  - Death [Fatal]
  - Acute kidney injury [Unknown]
  - Sepsis [Unknown]
  - Wound infection [Unknown]
  - Hyperkalaemia [Unknown]
  - White blood cell count increased [Unknown]
  - Blood glucose increased [Unknown]
